FAERS Safety Report 10194076 (Version 1)
Quarter: 2014Q2

REPORT INFORMATION
  Report Type: Spontaneous
  Country: US (occurrence: US)
  Receive Date: 20140524
  Receipt Date: 20140524
  Transmission Date: 20141212
  Serious: No
  Sender: FDA-Public Use
  Company Number: US-SANOFI-AVENTIS-2013SA052221

PATIENT
  Age: 70 Year
  Sex: Male

DRUGS (3)
  1. LANTUS SOLOSTAR [Suspect]
     Indication: TYPE 2 DIABETES MELLITUS
     Route: 051
     Dates: start: 2007
  2. SOLOSTAR [Suspect]
     Indication: TYPE 2 DIABETES MELLITUS
     Dates: start: 2007
  3. NOVOLOG [Concomitant]

REACTIONS (3)
  - Therapeutic response decreased [Unknown]
  - Blood glucose decreased [Unknown]
  - Blood glucose increased [Unknown]
